FAERS Safety Report 6130064-9 (Version None)
Quarter: 2009Q1

REPORT INFORMATION
  Report Type: 
  Country: None (occurrence: None)
  Receive Date: 20090324
  Receipt Date: 20090317
  Transmission Date: 20090719
  Serious: Yes (Disabling)
  Sender: FDA-Public Use
  Company Number: DE-AVENTIS-200910613DE

PATIENT
  Age: 69 Year
  Sex: Male
  Weight: 72.5 kg

DRUGS (8)
  1. TAXOTERE [Suspect]
     Route: 042
     Dates: start: 20090210, end: 20090210
  2. CELEBREX [Concomitant]
     Indication: DRUG USE FOR UNKNOWN INDICATION
     Dosage: DOSE: NOT REPORTED
     Route: 048
  3. CALCIMAGON                         /00108001/ [Concomitant]
     Dosage: DOSE: NOT REPORTED
     Route: 048
  4. OMEPRAZOLE [Concomitant]
     Indication: PROPHYLAXIS
     Dosage: DOSE: NOT REPORTED
     Route: 048
  5. TRAMUNDIN [Concomitant]
     Indication: PAIN
     Dosage: DOSE: NOT REPORTED
     Route: 048
  6. PAMIDRONATE DISODIUM [Concomitant]
     Dosage: DOSE: NOT REPORTED
     Route: 042
     Dates: end: 20090109
  7. FLUTAMID [Concomitant]
     Dosage: DOSE: NOT REPORTED
     Dates: start: 20090101
  8. BICALUTAMIDE [Concomitant]
     Dosage: DOSE: NOT REPORTED

REACTIONS (2)
  - DYSPHONIA [None]
  - OEDEMA PERIPHERAL [None]
